FAERS Safety Report 12471470 (Version 1)
Quarter: 2016Q2

REPORT INFORMATION
  Report Type: Spontaneous
  Country: US (occurrence: None)
  Receive Date: 20160615
  Receipt Date: 20160615
  Transmission Date: 20160815
  Serious: Yes (Other)
  Sender: FDA-Public Use
  Company Number: None

PATIENT
  Age: 64 Year
  Sex: Female
  Weight: 128 kg

DRUGS (1)
  1. OPDIVO [Suspect]
     Active Substance: NIVOLUMAB
     Indication: METASTATIC RENAL CELL CARCINOMA
     Route: 041
     Dates: start: 20151117, end: 20160614

REACTIONS (2)
  - Hypertriglyceridaemia [None]
  - Hypercholesterolaemia [None]

NARRATIVE: CASE EVENT DATE: 20160614
